FAERS Safety Report 9245791 (Version 5)
Quarter: 2014Q2

REPORT INFORMATION
  Report Type: Spontaneous
  Country: US (occurrence: US)
  Receive Date: 20130422
  Receipt Date: 20140523
  Transmission Date: 20141212
  Serious: No
  Sender: FDA-Public Use
  Company Number: US-009507513-1112USA02606

PATIENT
  Sex: Male

DRUGS (2)
  1. PROPECIA [Suspect]
     Indication: ALOPECIA
     Dosage: 1 MG, DAILY
     Route: 048
     Dates: start: 20100713, end: 20110727
  2. PROPECIA [Suspect]
     Indication: ANDROGENETIC ALOPECIA

REACTIONS (13)
  - Cognitive disorder [Unknown]
  - Amnesia [Unknown]
  - Penile size reduced [Unknown]
  - Urine flow decreased [Unknown]
  - Anxiety [Unknown]
  - Urinary tract obstruction [Unknown]
  - Terminal dribbling [Unknown]
  - Prostatitis [Unknown]
  - Sexual dysfunction [Not Recovered/Not Resolved]
  - Erectile dysfunction [Unknown]
  - Drug ineffective [Unknown]
  - Depression [Unknown]
  - Drug ineffective [Unknown]
